FAERS Safety Report 5583808-9 (Version None)
Quarter: 2008Q1

REPORT INFORMATION
  Report Type: 
  Country: None (occurrence: None)
  Receive Date: 20080108
  Receipt Date: 20071227
  Transmission Date: 20080703
  Serious: Yes (Other)
  Sender: FDA-Public Use
  Company Number: US-JNJFOC-20071007588

PATIENT
  Age: 83 Year
  Sex: Male
  Weight: 61.24 kg

DRUGS (7)
  1. NIZORAL A-D [Suspect]
  2. NIZORAL A-D [Suspect]
     Indication: DANDRUFF
     Dosage: ONE SHAMPOO
  3. CARBIDOPA AND LEVODOPA [Concomitant]
     Indication: PARKINSON'S DISEASE
  4. ASPIRIN [Concomitant]
     Indication: CEREBROVASCULAR ACCIDENT PROPHYLAXIS
  5. GLYBERIDE [Concomitant]
     Indication: TYPE 2 DIABETES MELLITUS
  6. ZOCOR [Concomitant]
     Indication: BLOOD CHOLESTEROL INCREASED
  7. AVAPRO [Concomitant]
     Indication: HYPERTENSION

REACTIONS (4)
  - APPLICATION SITE DISCHARGE [None]
  - AURICULAR SWELLING [None]
  - ERYTHEMA [None]
  - SWELLING FACE [None]
